FAERS Safety Report 5224744-7 (Version None)
Quarter: 2007Q1

REPORT INFORMATION
  Report Type: 
  Country: None (occurrence: None)
  Receive Date: 20070129
  Receipt Date: 20070129
  Transmission Date: 20070707
  Serious: Yes (Hospitalization)
  Sender: FDA-Public Use
  Company Number: None

PATIENT
  Age: 72 Year
  Sex: Male
  Weight: 84.369 kg

DRUGS (15)
  1. BEVACIZUMAB 400 MG AND 100 MG [Suspect]
     Indication: PROSTATE CANCER
     Dosage: 455 MG X1  IV
     Route: 042
  2. DOCETAXEL  20 MG [Suspect]
     Indication: PROSTATE CANCER
     Dosage: 60 MG  X1  IV
     Route: 042
  3. CHEMO [Concomitant]
  4. LISINOPRIL [Concomitant]
  5. POTASSIUM ACETATE [Concomitant]
  6. FERROS GLUCONATE [Concomitant]
  7. FUROSEMIDE [Concomitant]
  8. GLYBURIDE [Concomitant]
  9. METOPROLOL TARTRATE [Concomitant]
  10. OMEPRAZOLE [Concomitant]
  11. DARBEPOETIN [Concomitant]
  12. PREDNISONE [Concomitant]
  13. PROMETHAZINE [Concomitant]
  14. LORAZEPAM [Concomitant]
  15. OXYCODONE HCL [Concomitant]

REACTIONS (9)
  - ASTHENIA [None]
  - CHILLS [None]
  - DEHYDRATION [None]
  - FATIGUE [None]
  - MUCOSAL INFLAMMATION [None]
  - MYALGIA [None]
  - NAUSEA [None]
  - PYREXIA [None]
  - UNEVALUABLE EVENT [None]
